FAERS Safety Report 6971907-6 (Version None)
Quarter: 2010Q3

REPORT INFORMATION
  Report Type: 
  Country: None (occurrence: None)
  Receive Date: 20100908
  Receipt Date: 20100908
  Transmission Date: 20110219
  Serious: Yes (Hospitalization)
  Sender: FDA-Public Use
  Company Number: None

PATIENT
  Age: 73 Year
  Sex: Male
  Weight: 82.3 kg

DRUGS (10)
  1. DECITABINE 0.2MG/KG [Suspect]
     Indication: CHRONIC MYELOID LEUKAEMIA
     Dosage: 16.48MG 2X/WK, SUB-Q INJ
  2. CIPRO [Concomitant]
  3. ACYCLOVIR [Concomitant]
  4. DIFLUCAN [Concomitant]
  5. HYDROCHLOROTHIAZIDE [Concomitant]
  6. NEURONTIN [Concomitant]
  7. BMX SOLUTION [Concomitant]
  8. DOCUSATE SODIUM [Concomitant]
  9. COMPAZINE [Concomitant]
  10. CIALIS [Concomitant]

REACTIONS (2)
  - NEUTROPENIA [None]
  - PYREXIA [None]
